FAERS Safety Report 12461164 (Version 1)
Quarter: 2016Q2

REPORT INFORMATION
  Report Type: Spontaneous
  Country: US (occurrence: US)
  Receive Date: 20160613
  Receipt Date: 20160613
  Transmission Date: 20160815
  Serious: No
  Sender: FDA-Public Use
  Company Number: US-US WORLDMEDS, LLC-USW201602-000224

PATIENT
  Age: 60 Year
  Sex: Male

DRUGS (5)
  1. MIDODRINE [Concomitant]
     Active Substance: MIDODRINE
     Dates: start: 20151201, end: 20160217
  2. APOKYN [Suspect]
     Active Substance: APOMORPHINE HYDROCHLORIDE
     Indication: PARKINSON^S DISEASE
     Route: 058
     Dates: start: 20160303
  3. STALEVO [Concomitant]
     Active Substance: CARBIDOPA\ENTACAPONE\LEVODOPA
  4. AZILECT [Concomitant]
     Active Substance: RASAGILINE MESYLATE
  5. MIDODRINE [Concomitant]
     Active Substance: MIDODRINE
     Dates: start: 20160304

REACTIONS (3)
  - Orthostatic hypotension [Recovered/Resolved]
  - Somnolence [Recovered/Resolved]
  - Dizziness [Recovered/Resolved]

NARRATIVE: CASE EVENT DATE: 20160217
